FAERS Safety Report 21837312 (Version 1)
Quarter: 2023Q1

REPORT INFORMATION
  Report Type: Spontaneous
  Country: US (occurrence: None)
  Receive Date: 20230106
  Receipt Date: 20230106
  Transmission Date: 20230417
  Serious: No
  Sender: FDA-Public Use
  Company Number: None

PATIENT
  Age: 61 Year
  Sex: Female

DRUGS (1)
  1. HUMIRA [Suspect]
     Active Substance: ADALIMUMAB
     Indication: Rheumatoid arthritis
     Dosage: FREQUENCY : EVERY OTHER WEEK;?
     Route: 058
     Dates: start: 202008

REACTIONS (7)
  - Device defective [None]
  - Incorrect dose administered [None]
  - Injection site pain [None]
  - Needle issue [None]
  - Injection site bruising [None]
  - Injection site swelling [None]
  - Drug dose omission by device [None]

NARRATIVE: CASE EVENT DATE: 20230103
